FAERS Safety Report 7737357-X (Version None)
Quarter: 2011Q3

REPORT INFORMATION
  Report Type: 
  Country: None (occurrence: None)
  Receive Date: 20110908
  Receipt Date: 20110719
  Transmission Date: 20111222
  Serious: Yes (Other)
  Sender: FDA-Public Use
  Company Number: JP-AMGEN-JPNSP2011038000

PATIENT
  Age: 43 Year
  Sex: Female

DRUGS (6)
  1. NEORAL [Concomitant]
  2. ROMIPLATE [Suspect]
     Dosage: 2 MUG/KG, UNK
     Route: 058
     Dates: start: 20110519, end: 20110519
  3. ROMIPLATE [Suspect]
     Dosage: 3 MUG/KG, UNK
     Route: 058
     Dates: start: 20110526, end: 20110526
  4. ROMIPLATE [Suspect]
     Dosage: 4 MUG/KG, UNK
     Route: 058
     Dates: start: 20110603, end: 20110603
  5. ROMIPLATE [Suspect]
     Dosage: 1 MUG/KG, UNK
     Route: 058
     Dates: start: 20110421, end: 20110512
  6. ROMIPLATE [Suspect]
     Indication: IDIOPATHIC THROMBOCYTOPENIC PURPURA
     Dosage: 5 MUG/KG, UNK
     Route: 058
     Dates: start: 20110609, end: 20110616

REACTIONS (3)
  - PLATELET COUNT DECREASED [None]
  - THERAPEUTIC RESPONSE DECREASED [None]
  - ANTIBODY TEST [None]
